FAERS Safety Report 9986598 (Version 2)
Quarter: 2014Q1

REPORT INFORMATION
  Report Type: Spontaneous
  Country: PR (occurrence: PR)
  Receive Date: 20140307
  Receipt Date: 20140307
  Transmission Date: 20141002
  Serious: No
  Sender: FDA-Public Use
  Company Number: PR-ABBVIE-12P-131-0970156-00

PATIENT
  Age: 41 Year
  Sex: Male
  Weight: 80.81 kg

DRUGS (12)
  1. HUMIRA [Suspect]
     Indication: RHEUMATOID ARTHRITIS
     Route: 058
     Dates: start: 20110117, end: 201212
  2. HUMIRA [Suspect]
     Route: 058
     Dates: start: 201301
  3. CLINORIL [Concomitant]
     Indication: RHEUMATOID ARTHRITIS
     Dosage: 400 MG (2 TABLETS) DAILY
     Route: 048
  4. PREDNISONE [Concomitant]
     Indication: RHEUMATOID ARTHRITIS
     Route: 048
  5. ENALAPRIL [Concomitant]
     Indication: HYPERTENSION
     Route: 048
  6. FOLIC ACID [Concomitant]
     Indication: VITAMIN SUPPLEMENTATION
     Route: 048
  7. METHOTREXATE [Concomitant]
     Indication: RHEUMATOID ARTHRITIS
     Route: 048
  8. WELLBUTRIN [Concomitant]
     Indication: MAJOR DEPRESSION
     Route: 048
  9. KLONOPIN [Concomitant]
     Indication: MAJOR DEPRESSION
     Route: 048
  10. RISPERDAL [Concomitant]
     Indication: MAJOR DEPRESSION
     Route: 048
  11. TEMAZEPAM [Concomitant]
     Indication: INSOMNIA
     Route: 048
  12. FLEXERIL [Concomitant]
     Indication: PAIN
     Route: 048

REACTIONS (2)
  - Dysphonia [Recovered/Resolved]
  - Nasopharyngitis [Recovered/Resolved]
